FAERS Safety Report 10163051 (Version 2)
Quarter: 2014Q2

REPORT INFORMATION
  Report Type: Spontaneous
  Country: US (occurrence: US)
  Receive Date: 20140509
  Receipt Date: 20140625
  Transmission Date: 20141212
  Serious: Yes (Other)
  Sender: FDA-Public Use
  Company Number: US-TEVA-480605USA

PATIENT
  Sex: Male
  Weight: 70.37 kg

DRUGS (1)
  1. ACTIQ [Suspect]
     Indication: BACK PAIN
     Dates: end: 2012

REACTIONS (6)
  - Aphagia [Not Recovered/Not Resolved]
  - Tooth erosion [Unknown]
  - Infection [Not Recovered/Not Resolved]
  - Swelling face [Unknown]
  - Facial pain [Unknown]
  - Adverse event [Unknown]
